FAERS Safety Report 9240158 (Version 1)
Quarter: 2013Q1

REPORT INFORMATION
  Report Type: Spontaneous
  Country: US (occurrence: None)
  Receive Date: 20121119
  Receipt Date: 20121119
  Transmission Date: 20140127
  Serious: Yes (Other)
  Sender: FDA-Public Use
  Company Number: 065352

PATIENT
  Age: 57 None
  Sex: Female
  Weight: 57.6 kg

DRUGS (2)
  1. LACOSAMIDE [Suspect]
     Indication: CONVULSION
     Dosage: TO CONTINUING?
     Route: 048
     Dates: start: 2011, end: 20120905
  2. KEPPRA [Suspect]
     Indication: CONVULSION
     Dosage: TO CONTINUING?
     Route: 048
     Dates: start: 2011

REACTIONS (2)
  - Convulsion [None]
  - Medication error [None]
